FAERS Safety Report 21307523 (Version 1)
Quarter: 2022Q3

REPORT INFORMATION
  Report Type: Spontaneous
  Country: US (occurrence: US)
  Receive Date: 20220908
  Receipt Date: 20220908
  Transmission Date: 20221026
  Serious: Yes (Hospitalization, Other)
  Sender: FDA-Public Use
  Company Number: US-APOTEX-2022AP012453

PATIENT
  Age: 42 Year
  Sex: Male

DRUGS (5)
  1. LITHIUM [Suspect]
     Active Substance: LITHIUM
     Indication: Antipsychotic therapy
     Dosage: 900 MILLIGRAM, BID
     Route: 065
  2. CLOZAPINE [Concomitant]
     Active Substance: CLOZAPINE
     Indication: Antipsychotic therapy
     Dosage: UNK, Q.H.S.
     Route: 065
  3. FLUPHENAZINE DECANOATE [Concomitant]
     Active Substance: FLUPHENAZINE DECANOATE
     Indication: Antipsychotic therapy
     Dosage: 37.5 MILLIGRAM, Q.O.WK.
     Route: 030
  4. FLUPHENAZINE DECANOATE [Concomitant]
     Active Substance: FLUPHENAZINE DECANOATE
     Dosage: 50 MILLIGRAM, Q.O.WK.
     Route: 030
  5. FLUPHENAZINE DECANOATE [Concomitant]
     Active Substance: FLUPHENAZINE DECANOATE
     Dosage: 5 MILLIGRAM, BID
     Route: 048

REACTIONS (2)
  - Toxicity to various agents [Recovered/Resolved]
  - Nephrogenic diabetes insipidus [Recovered/Resolved]
